FAERS Safety Report 19826100 (Version 1)
Quarter: 2021Q3

REPORT INFORMATION
  Report Type: Spontaneous
  Country: US (occurrence: US)
  Receive Date: 20210910
  Receipt Date: 20210910
  Transmission Date: 20211014
  Serious: Yes (Hospitalization)
  Sender: FDA-Public Use
  Company Number: None

PATIENT
  Age: 59 Year
  Sex: Male

DRUGS (6)
  1. NUCALA [Suspect]
     Active Substance: MEPOLIZUMAB
     Indication: ASTHMA
     Dosage: ?          OTHER FREQUENCY:Q4WKS;?
     Route: 058
  2. HYPERLIPIDEMIA [Concomitant]
  3. MILD PERSISTENT ASTHMA [Concomitant]
  4. TYPE 2 DIABETES MELLITUS W/O COMPLICATION [Concomitant]
  5. TYPE 2 DIABETES W UNSP DIABETIC RTNOP W/O MACULAR EDEMA [Concomitant]
  6. UNSP ASTHMA W ACUTE EXACERBATION [Concomitant]

REACTIONS (2)
  - Product use issue [None]
  - Emergency care [None]
